FAERS Safety Report 4844878-6 (Version None)
Quarter: 2005Q4

REPORT INFORMATION
  Report Type: 
  Country: None (occurrence: None)
  Receive Date: 20051201
  Receipt Date: 20051201
  Transmission Date: 20060501
  Serious: Yes (Other)
  Sender: FDA-Public Use
  Company Number: None

PATIENT
  Age: 31 Year
  Sex: Female
  Weight: 54.4316 kg

DRUGS (6)
  1. LAMICTAL [Suspect]
     Indication: EPILEPSY
     Dosage: 25 MG EVERY OTHER DAY PO
     Route: 048
     Dates: start: 20051001, end: 20051107
  2. DEPAKOTE [Concomitant]
  3. LEXAPRO [Concomitant]
  4. WELLBUTRIN [Concomitant]
  5. SEROQUEL [Concomitant]
  6. ALLEGRAL [Concomitant]

REACTIONS (1)
  - RASH [None]
